FAERS Safety Report 4336107-7 (Version None)
Quarter: 2004Q2

REPORT INFORMATION
  Report Type: 
  Country: None (occurrence: None)
  Receive Date: 20040409
  Receipt Date: 20030814
  Transmission Date: 20050107
  Serious: Yes (Other)
  Sender: FDA-Public Use
  Company Number: GB-MERCK-0308GBR00102M

PATIENT
  Age: 14 Year
  Sex: Female

DRUGS (8)
  1. ALBUTEROL [Concomitant]
     Route: 065
  2. CALCIUM CARBONATE [Concomitant]
     Route: 065
  3. FLUTICASONE PROPIONATE AND SALMETEROL XINAFOATE [Concomitant]
     Route: 065
  4. SINGULAIR [Suspect]
     Indication: ASTHMA
     Route: 048
     Dates: start: 20000101, end: 20030101
  5. SINGULAIR [Suspect]
     Route: 048
     Dates: start: 20030101
  6. OMEPRAZOLE [Concomitant]
     Route: 065
  7. PREDNISOLONE [Concomitant]
     Route: 048
  8. THEOPHYLLINE [Concomitant]
     Route: 065

REACTIONS (2)
  - BLOOD PH DECREASED [None]
  - DRUG EXPOSURE DURING PREGNANCY [None]
